FAERS Safety Report 15041280 (Version 2)
Quarter: 2018Q4

REPORT INFORMATION
  Report Type: Spontaneous
  Country: US (occurrence: US)
  Receive Date: 20180621
  Receipt Date: 20181011
  Transmission Date: 20190204
  Serious: Yes (Hospitalization)
  Sender: FDA-Public Use
  Company Number: US-SUN PHARMACEUTICAL INDUSTRIES LTD-2018US-176181

PATIENT
  Age: 32 Year
  Sex: Female

DRUGS (3)
  1. CLINDAMYCIN. [Suspect]
     Active Substance: CLINDAMYCIN
     Indication: BABESIOSIS
     Dosage: UNK
     Route: 065
  2. QUININE [Suspect]
     Active Substance: QUININE
     Indication: BABESIOSIS
     Dosage: UNK
     Route: 065
  3. ATAVAQUONE [Suspect]
     Active Substance: ATOVAQUONE
     Indication: PRODUCT USED FOR UNKNOWN INDICATION
     Dosage: UNK
     Route: 065

REACTIONS (8)
  - Electrocardiogram QT prolonged [Unknown]
  - Sepsis [Unknown]
  - Condition aggravated [Recovered/Resolved]
  - Tachycardia [Unknown]
  - Tachypnoea [Unknown]
  - Haemolytic anaemia [Recovering/Resolving]
  - Exposure during pregnancy [Unknown]
  - Live birth [Unknown]
